FAERS Safety Report 25578827 (Version 1)
Quarter: 2025Q3

REPORT INFORMATION
  Report Type: Spontaneous
  Country: ZA (occurrence: ZA)
  Receive Date: 20250718
  Receipt Date: 20250718
  Transmission Date: 20251020
  Serious: Yes (Other)
  Sender: TEVA
  Company Number: ZA-TEVA-VS-3351213

PATIENT
  Age: 38 Year
  Sex: Female
  Weight: 75 kg

DRUGS (1)
  1. COPAXONE [Suspect]
     Active Substance: GLATIRAMER ACETATE
     Indication: Multiple sclerosis
     Route: 058
     Dates: start: 20220629

REACTIONS (6)
  - Papilloedema [Unknown]
  - Muscle spasms [Unknown]
  - Dysaesthesia [Unknown]
  - Hypertonic bladder [Unknown]
  - Bladder disorder [Unknown]
  - Injection site reaction [Recovered/Resolved]
